FAERS Safety Report 8608528-5 (Version None)
Quarter: 2012Q3

REPORT INFORMATION
  Report Type: 
  Country: None (occurrence: None)
  Receive Date: 20120806
  Receipt Date: 20120719
  Transmission Date: 20120928
  Serious: Yes (Other)
  Sender: FDA-Public Use
  Company Number: ACO_31037_2012

PATIENT
  Age: 44 Year
  Sex: Female

DRUGS (2)
  1. FAMPYRA (DALFAMPRIDINE) TABLET, 10MG [Suspect]
     Indication: MULTIPLE SCLEROSIS
     Dosage: 10 MG, BID, ORAL
     Route: 048
     Dates: start: 20120521, end: 20120608
  2. CERAZETTE /00754001/ (DESOGESTREL) [Concomitant]

REACTIONS (5)
  - NEURALGIA [None]
  - OESOPHAGITIS [None]
  - PALPITATIONS [None]
  - URTICARIA [None]
  - DIZZINESS [None]
